FAERS Safety Report 15157613 (Version 1)
Quarter: 2018Q3

REPORT INFORMATION
  Report Type: Spontaneous
  Country: US (occurrence: US)
  Receive Date: 20180620
  Receipt Date: 20180620
  Transmission Date: 20181010
  Serious: Yes (Hospitalization)
  Sender: FDA-Public Use
  Company Number: None

PATIENT
  Age: 37 Year
  Sex: Male

DRUGS (7)
  1. COLESTIPOL [Concomitant]
     Active Substance: COLESTIPOL
  2. ZOFRAN [Concomitant]
     Active Substance: ONDANSETRON HYDROCHLORIDE
  3. KLONOPIN [Concomitant]
     Active Substance: CLONAZEPAM
  4. HUMIRA [Suspect]
     Active Substance: ADALIMUMAB
     Indication: CROHN^S DISEASE
     Route: 058
     Dates: start: 20150420
  5. METHOTREXATE. [Concomitant]
     Active Substance: METHOTREXATE
  6. REMERON [Concomitant]
     Active Substance: MIRTAZAPINE
  7. MULTI?VITAMIN [Concomitant]
     Active Substance: .ALPHA.-TOCOPHEROL ACETATE, DL-\ASCORBIC ACID\CYANOCOBALAMIN\FLUORIDE ION\FOLIC ACID\NIACIN\PYRIDOXINE\RIBOFLAVIN\THIAMINE\VITAMIN A\VITAMIN D

REACTIONS (5)
  - Fistula [None]
  - Abdominal pain [None]
  - Diarrhoea [None]
  - Weight abnormal [None]
  - Condition aggravated [None]

NARRATIVE: CASE EVENT DATE: 20180601
